FAERS Safety Report 9099903 (Version 2)
Quarter: 2013Q2

REPORT INFORMATION
  Report Type: Spontaneous
  Country: FR (occurrence: FR)
  Receive Date: 20130214
  Receipt Date: 20130405
  Transmission Date: 20140414
  Serious: Yes (Hospitalization)
  Sender: FDA-Public Use
  Company Number: FR-PFIZER INC-2013052254

PATIENT
  Age: 33 Year
  Sex: Female

DRUGS (2)
  1. MINIDRIL [Suspect]
     Indication: CONTRACEPTION
     Dosage: 1 DF, 1X/DAY
     Route: 048
     Dates: start: 20121206, end: 20121215
  2. ADEPAL [Suspect]
     Indication: CONTRACEPTION
     Dosage: UNK
     Route: 048
     Dates: start: 201210, end: 201210

REACTIONS (3)
  - Mesenteric vein thrombosis [Recovered/Resolved]
  - Splenic vein thrombosis [Recovered/Resolved]
  - Abdominal pain [Recovered/Resolved]
